FAERS Safety Report 4652998-4 (Version None)
Quarter: 2005Q2

REPORT INFORMATION
  Report Type: 
  Country: None (occurrence: None)
  Receive Date: 20050503
  Receipt Date: 20050418
  Transmission Date: 20051028
  Serious: Yes (Hospitalization)
  Sender: FDA-Public Use
  Company Number: 200503301

PATIENT
  Age: 36 Year
  Sex: Male

DRUGS (5)
  1. BOTOX [Suspect]
     Indication: MUSCLE SPASTICITY
     Dosage: 200 UNITS PRN IM
     Route: 030
  2. NEURONTIN [Concomitant]
  3. TIZANIDINE HCL [Concomitant]
  4. EFFEXOR [Concomitant]
  5. PERCOCET [Concomitant]

REACTIONS (5)
  - ASTHENIA [None]
  - CONVERSION DISORDER [None]
  - HYPOAESTHESIA [None]
  - INFLUENZA LIKE ILLNESS [None]
  - MYELITIS TRANSVERSE [None]
